FAERS Safety Report 17454882 (Version 1)
Quarter: 2020Q1

REPORT INFORMATION
  Report Type: Spontaneous
  Country: US (occurrence: US)
  Receive Date: 20200211
  Receipt Date: 20200211
  Transmission Date: 20200409
  Serious: Yes (Death)
  Sender: FDA-Public Use
  Company Number: None

PATIENT
  Age: 72 Year
  Sex: Male

DRUGS (1)
  1. ABIRATERONE 250MG TAB [Suspect]
     Active Substance: ABIRATERONE
     Dosage: ?          OTHER ROUTE:OCCL DRESSING TECHNIQUE?
     Dates: start: 201909, end: 201910

REACTIONS (1)
  - Death [None]

NARRATIVE: CASE EVENT DATE: 20191229
